FAERS Safety Report 6641611-2 (Version None)
Quarter: 2010Q1

REPORT INFORMATION
  Report Type: 
  Country: None (occurrence: None)
  Receive Date: 20100317
  Receipt Date: 20100317
  Transmission Date: 20100710
  Serious: No
  Sender: FDA-Public Use
  Company Number: None

PATIENT
  Sex: Female
  Weight: 84 kg

DRUGS (2)
  1. CISPLATIN [Suspect]
     Dosage: 98 MG
  2. ALIMTA [Suspect]
     Dosage: 975 MG

REACTIONS (5)
  - ASTHENIA [None]
  - CHEST PAIN [None]
  - HAEMOGLOBIN DECREASED [None]
  - HYPERTENSION [None]
  - HYPOAESTHESIA [None]
